FAERS Safety Report 7738110-3 (Version None)
Quarter: 2011Q3

REPORT INFORMATION
  Report Type: 
  Country: None (occurrence: None)
  Receive Date: 20110906
  Receipt Date: 20110822
  Transmission Date: 20111222
  Serious: Yes (Hospitalization)
  Sender: FDA-Public Use
  Company Number: LB-ACCORD-010448

PATIENT
  Age: 6 Year
  Sex: Male

DRUGS (4)
  1. CYTARABINE [Suspect]
     Indication: ACUTE PROMYELOCYTIC LEUKAEMIA
     Dosage: 100.00-MG/M2-12.0 /HOURS
  2. ETOPOSIDE [Suspect]
     Indication: ACUTE PROMYELOCYTIC LEUKAEMIA
     Dosage: 150.00-MG/M2
  3. IDARUBICIN HCL [Suspect]
     Indication: ACUTE PROMYELOCYTIC LEUKAEMIA
     Dosage: 12.00-MG/M2-1.0DAYS
  4. VESANOID [Suspect]
     Indication: ACUTE PROMYELOCYTIC LEUKAEMIA
     Dosage: 20.00-MG-2.00 TIMES PER-1.0DAYS / ORAL
     Route: 048

REACTIONS (19)
  - PERIPORTAL OEDEMA [None]
  - GALLBLADDER NECROSIS [None]
  - RENAL INFARCT [None]
  - PROTHROMBIN TIME PROLONGED [None]
  - FIBRIN D DIMER INCREASED [None]
  - GALLBLADDER OEDEMA [None]
  - PYREXIA [None]
  - SPLENIC INFARCTION [None]
  - COLITIS ISCHAEMIC [None]
  - BLOOD ALBUMIN DECREASED [None]
  - ANTITHROMBIN III INCREASED [None]
  - INFLAMMATION [None]
  - OFF LABEL USE [None]
  - PROTEIN C DEFICIENCY [None]
  - HEPATIC STEATOSIS [None]
  - DIARRHOEA [None]
  - LARGE INTESTINAL ULCER [None]
  - INTESTINAL INFARCTION [None]
  - ABDOMINAL PAIN [None]
